FAERS Safety Report 16866644 (Version 5)
Quarter: 2019Q4

REPORT INFORMATION
  Report Type: Spontaneous
  Country: US (occurrence: US)
  Receive Date: 20190930
  Receipt Date: 20191025
  Transmission Date: 20200122
  Serious: Yes (Hospitalization, Other)
  Sender: FDA-Public Use
  Company Number: US-SHIRE-US201931389

PATIENT

DRUGS (1)
  1. GATTEX [Suspect]
     Active Substance: TEDUGLUTIDE\WATER
     Indication: SHORT-BOWEL SYNDROME
     Dosage: 0.07 MILLIGRAM, 1X/DAY:QD
     Route: 065

REACTIONS (4)
  - Stoma complication [Unknown]
  - Influenza like illness [Unknown]
  - Parainfluenzae virus infection [Unknown]
  - Electrolyte imbalance [Unknown]
